FAERS Safety Report 10725407 (Version 3)
Quarter: 2016Q3

REPORT INFORMATION
  Report Type: Spontaneous
  Country: JP (occurrence: JP)
  Receive Date: 20150121
  Receipt Date: 20160912
  Transmission Date: 20161109
  Serious: Yes (Hospitalization, Other)
  Sender: FDA-Public Use
  Company Number: JP-GLAXOSMITHKLINE-JP2015JPN004095

PATIENT
  Age: 48 Year
  Sex: Female

DRUGS (4)
  1. LAMICTAL [Suspect]
     Active Substance: LAMOTRIGINE
     Indication: EPILEPSY
     Dosage: 25 MG, QOD
     Route: 048
     Dates: start: 20141112, end: 20141124
  2. LAMICTAL [Suspect]
     Active Substance: LAMOTRIGINE
     Indication: CONVULSION PROPHYLAXIS
     Dosage: 25 MG, QD
     Route: 048
     Dates: start: 20141125, end: 20141207
  3. LAMICTAL [Suspect]
     Active Substance: LAMOTRIGINE
     Dosage: 50 MG, QD
     Route: 048
     Dates: start: 20141208, end: 20141222
  4. SELENICA-R [Concomitant]
     Active Substance: VALPROATE SODIUM
     Dosage: 600 MG, QD
     Dates: start: 20080203, end: 20141222

REACTIONS (7)
  - Erythema multiforme [Recovered/Resolved]
  - Peripheral swelling [Recovered/Resolved]
  - Mucosal erosion [Recovered/Resolved]
  - Enanthema [Recovered/Resolved]
  - Drug eruption [Recovered/Resolved]
  - Urticaria [Recovered/Resolved]
  - Swelling face [Recovered/Resolved]

NARRATIVE: CASE EVENT DATE: 20141222
